FAERS Safety Report 8073090-5 (Version None)
Quarter: 2012Q1

REPORT INFORMATION
  Report Type: 
  Country: None (occurrence: None)
  Receive Date: 20120123
  Receipt Date: 20120123
  Transmission Date: 20120608
  Serious: Yes (Other)
  Sender: FDA-Public Use
  Company Number: None

PATIENT
  Age: 65 Year
  Sex: Male

DRUGS (4)
  1. ATIVAN [Concomitant]
  2. REVLIMID [Suspect]
     Indication: MULTIPLE MYELOMA
     Dosage: 15MG QDX21D/28D ORALLY
     Route: 048
     Dates: start: 20110301, end: 20120101
  3. BIAXIN [Concomitant]
  4. DECADRON [Concomitant]

REACTIONS (1)
  - NEUROPATHY PERIPHERAL [None]
